FAERS Safety Report 6627919-5 (Version None)
Quarter: 2010Q1

REPORT INFORMATION
  Report Type: 
  Country: None (occurrence: None)
  Receive Date: 20100311
  Receipt Date: 20090318
  Transmission Date: 20100710
  Serious: No
  Sender: FDA-Public Use
  Company Number: A0773967A

PATIENT
  Age: 47 Year
  Sex: Female

DRUGS (2)
  1. NICORETTE [Suspect]
     Dates: end: 20090313
  2. AMOXICILLIN [Concomitant]

REACTIONS (2)
  - PAIN IN JAW [None]
  - TOOTH DISORDER [None]
